FAERS Safety Report 17648543 (Version 1)
Quarter: 2020Q2

REPORT INFORMATION
  Report Type: Spontaneous
  Country: ZA (occurrence: ZA)
  Receive Date: 20200408
  Receipt Date: 20200408
  Transmission Date: 20200713
  Serious: Yes (Other)
  Sender: FDA-Public Use
  Company Number: ZA-SA-2020SA075153

PATIENT
  Age: 50 Year
  Sex: Male

DRUGS (10)
  1. SULFASALAZINE. [Suspect]
     Active Substance: SULFASALAZINE
     Dosage: 1 G, BID
     Dates: start: 2016
  2. PREDNISONE. [Concomitant]
     Active Substance: PREDNISONE
  3. CHLOROQUINE. [Suspect]
     Active Substance: CHLOROQUINE
     Dosage: 200 MG, QD
     Dates: start: 2016
  4. FOLIC ACID. [Concomitant]
     Active Substance: FOLIC ACID
  5. ARAVA [Suspect]
     Active Substance: LEFLUNOMIDE
     Dosage: 10 MG, QW
     Dates: start: 20181031
  6. TRAMACET [Concomitant]
     Active Substance: ACETAMINOPHEN\TRAMADOL
     Indication: PAIN
  7. CORTISONE [Concomitant]
     Active Substance: CORTISONE
     Dosage: UNK
     Dates: start: 20181031
  8. LYRICA [Concomitant]
     Active Substance: PREGABALIN
  9. ARCOXIA [Concomitant]
     Active Substance: ETORICOXIB
  10. DORMONOCT [Concomitant]
     Active Substance: LOPRAZOLAM
     Indication: INSOMNIA

REACTIONS (4)
  - Osteoarthritis [Unknown]
  - Diverticulum [Unknown]
  - Seronegative arthritis [Unknown]
  - Adverse drug reaction [Unknown]

NARRATIVE: CASE EVENT DATE: 20160214
